FAERS Safety Report 12350405 (Version 2)
Quarter: 2016Q3

REPORT INFORMATION
  Report Type: Spontaneous
  Country: PR (occurrence: PR)
  Receive Date: 20160510
  Receipt Date: 20160802
  Transmission Date: 20161109
  Serious: No
  Sender: FDA-Public Use
  Company Number: PR-PFIZER INC-2016219722

PATIENT
  Age: 44 Year
  Sex: Female
  Weight: 92.99 kg

DRUGS (1)
  1. NEURONTIN [Suspect]
     Active Substance: GABAPENTIN
     Indication: PAIN
     Dosage: 600 MG, UNK (2-3 TIMES A DAY)

REACTIONS (1)
  - Drug ineffective for unapproved indication [Unknown]
